FAERS Safety Report 19942600 (Version 2)
Quarter: 2021Q4

REPORT INFORMATION
  Report Type: Report from Study
  Country: CN (occurrence: CN)
  Receive Date: 20211011
  Receipt Date: 20211104
  Transmission Date: 20220303
  Serious: Yes (Hospitalization)
  Sender: FDA-Public Use
  Company Number: CN-PFIZER INC-202101282555

PATIENT
  Age: 70 Year
  Sex: Male
  Weight: 70 kg

DRUGS (9)
  1. PACLITAXEL [Suspect]
     Active Substance: PACLITAXEL
     Indication: Squamous cell carcinoma of lung
     Dosage: 175 MG/M2, 1X/3 WEEKS
     Route: 041
     Dates: start: 20210721, end: 20210811
  2. PACLITAXEL [Suspect]
     Active Substance: PACLITAXEL
     Dosage: 175 MG/M2, 1X/3 WEEKS
     Route: 041
     Dates: start: 20210901, end: 20210901
  3. CARBOPLATIN [Suspect]
     Active Substance: CARBOPLATIN
     Indication: Squamous cell carcinoma of lung
     Dosage: AUC5, 1X/3 WEEKS
     Route: 041
     Dates: start: 20210721, end: 20210811
  4. CARBOPLATIN [Suspect]
     Active Substance: CARBOPLATIN
     Dosage: AUC5, 1X/3 WEEKS
     Route: 041
     Dates: start: 20210901, end: 20210901
  5. INVESTIGATIONAL PRODUCT [Suspect]
     Active Substance: INVESTIGATIONAL PRODUCT
     Indication: Squamous cell carcinoma of lung
     Dosage: CYCLE 1 VIA INTRAVENOUS INFUSION, EVERY 3 WEEKS
     Route: 041
     Dates: start: 20210720, end: 20210831
  6. IRBESARTAN [Concomitant]
     Active Substance: IRBESARTAN
     Dosage: 75 MG, 1X/DAY
     Route: 048
     Dates: start: 20210706, end: 202110
  7. RABEPRAZOLE SODIUM [Concomitant]
     Active Substance: RABEPRAZOLE SODIUM
     Indication: Gastrointestinal disorder
     Dosage: 10 MG, 2X/DAY
     Route: 048
     Dates: start: 20210721, end: 202109
  8. COMPOUND METHOXYPHENAMINE [Concomitant]
     Indication: Productive cough
     Dosage: 2 CAPSULES, 3X/DAY
     Route: 048
     Dates: start: 20210810, end: 202109
  9. ONDANSETROM [ONDANSETRON HYDROCHLORIDE] [Concomitant]
     Indication: Antiemetic supportive care
     Dosage: 8 MG, 2X/DAY
     Route: 048
     Dates: start: 20210811, end: 202109

REACTIONS (1)
  - Pneumonia [Not Recovered/Not Resolved]

NARRATIVE: CASE EVENT DATE: 20210909
